FAERS Safety Report 19704490 (Version 1)
Quarter: 2021Q3

REPORT INFORMATION
  Report Type: Spontaneous
  Country: US (occurrence: US)
  Receive Date: 20210815
  Receipt Date: 20210815
  Transmission Date: 20211014
  Serious: Yes (Life-Threatening, Hospitalization, Disabling, Other)
  Sender: FDA-Public Use
  Company Number: None

PATIENT
  Age: 28 Year
  Sex: Female
  Weight: 58.97 kg

DRUGS (1)
  1. PARAGARD T 380A [Suspect]
     Active Substance: COPPER

REACTIONS (5)
  - Ectopic pregnancy [None]
  - Complication of device removal [None]
  - Device breakage [None]
  - Pregnancy with contraceptive device [None]
  - Pelvic pain [None]

NARRATIVE: CASE EVENT DATE: 20210729
